FAERS Safety Report 10066697 (Version 1)
Quarter: 2014Q2

REPORT INFORMATION
  Report Type: Spontaneous
  Country: US (occurrence: None)
  Receive Date: 20140401
  Receipt Date: 20140401
  Transmission Date: 20141212
  Serious: Yes (Hospitalization)
  Sender: FDA-Public Use
  Company Number: PHEH2013US022567

PATIENT
  Age: 83 Year
  Sex: Female

DRUGS (5)
  1. EXELON PATCH (RIVASTIGMINE) TRANS-THERAPEUTIC-SYSTEM [Suspect]
     Indication: DEMENTIA ALZHEIMER^S TYPE
     Dosage: PER 24 HOURS
     Route: 062
  2. OCUVITE (ASCORBIC ACID, RETINOL, TOCOPHEROL) [Concomitant]
  3. THIAMINE [Concomitant]
  4. PRILOSEC (OMEPRAZOLE) [Concomitant]
  5. MULTI-VIT (VITAMINS NOS) [Concomitant]

REACTIONS (4)
  - Hallucination [None]
  - Delirium [None]
  - Agitation [None]
  - Confusional state [None]
